FAERS Safety Report 4280298-3 (Version None)
Quarter: 2004Q1

REPORT INFORMATION
  Report Type: 
  Country: None (occurrence: None)
  Receive Date: 20040126
  Receipt Date: 20040109
  Transmission Date: 20041129
  Serious: Yes (Hospitalization)
  Sender: FDA-Public Use
  Company Number: PHHO2003ES16476

PATIENT
  Age: 61 Year
  Sex: Female
  Weight: 65 kg

DRUGS (5)
  1. SIMULECT [Suspect]
     Indication: LIVER TRANSPLANT
     Dosage: 20 MG, ONCE/SINGLE, INTRAVENOUS
     Route: 042
     Dates: start: 20031121, end: 20031121
  2. SIMULECT [Suspect]
     Indication: LIVER TRANSPLANT
     Dosage: 20 MG, ONCE/SINGLE, INTRAVENOUS
     Route: 042
     Dates: start: 20031125, end: 20031125
  3. NEORAL [Suspect]
     Indication: LIVER TRANSPLANT
     Dosage: SEE IMAGE, ORAL
     Route: 048
     Dates: start: 20031122, end: 20031126
  4. NEORAL [Suspect]
     Indication: LIVER TRANSPLANT
     Dosage: SEE IMAGE, ORAL
     Route: 048
     Dates: start: 20031203
  5. PREDNISONE [Concomitant]

REACTIONS (1)
  - RENAL FAILURE ACUTE [None]
